FAERS Safety Report 5367300-2 (Version None)
Quarter: 2007Q2

REPORT INFORMATION
  Report Type: 
  Country: None (occurrence: None)
  Receive Date: 20070622
  Receipt Date: 20060919
  Transmission Date: 20071010
  Serious: No
  Sender: FDA-Public Use
  Company Number: US-ASTRAZENECA-2004UW05681

PATIENT
  Age: 55 Year
  Sex: Female
  Weight: 70.5 kg

DRUGS (11)
  1. PULMICORT [Suspect]
     Indication: ASTHMA
     Route: 055
  2. PULMICORT [Suspect]
     Indication: BRONCHITIS
     Route: 055
  3. PULMICORT [Suspect]
     Indication: COUGH
     Route: 055
  4. ATACAND [Suspect]
     Route: 048
  5. EFFEXOR [Concomitant]
  6. DILANTIN [Concomitant]
  7. ATACAND [Concomitant]
     Route: 048
  8. TAMOXIFEN CITRATE [Concomitant]
  9. EFFEXOR [Concomitant]
  10. INSULIN [Concomitant]
  11. ASPIRIN [Concomitant]

REACTIONS (2)
  - PRURITUS GENERALISED [None]
  - URTICARIA [None]
